FAERS Safety Report 6731057-0 (Version None)
Quarter: 2010Q2

REPORT INFORMATION
  Report Type: 
  Country: None (occurrence: None)
  Receive Date: 20100518
  Receipt Date: 20100504
  Transmission Date: 20101027
  Serious: Yes (Hospitalization)
  Sender: FDA-Public Use
  Company Number: GB-MYLANLABS-2010S1007858

PATIENT
  Age: 43 Year
  Sex: Male

DRUGS (1)
  1. CLARITHROMYCIN [Suspect]
     Indication: OROPHARYNGEAL PAIN
     Route: 048
     Dates: start: 20100424

REACTIONS (3)
  - CONJUNCTIVAL HAEMORRHAGE [None]
  - PETECHIAE [None]
  - SWELLING FACE [None]
